FAERS Safety Report 4272564-2 (Version None)
Quarter: 2004Q1

REPORT INFORMATION
  Report Type: 
  Country: None (occurrence: None)
  Receive Date: 20040114
  Receipt Date: 20040114
  Transmission Date: 20041129
  Serious: Yes (Hospitalization)
  Sender: FDA-Public Use
  Company Number: None

PATIENT
  Age: 46 Year
  Sex: Female
  Weight: 68.9467 kg

DRUGS (2)
  1. XYREM [Suspect]
     Indication: CATAPLEXY
     Dosage: 2.5 (2X'S) ORAL
     Route: 048
     Dates: start: 20020129, end: 20020130
  2. XYREM [Suspect]
     Indication: NARCOLEPSY
     Dosage: 2.5 (2X'S) ORAL
     Route: 048
     Dates: start: 20020129, end: 20020130

REACTIONS (6)
  - BURNING SENSATION [None]
  - CEREBRAL HAEMORRHAGE [None]
  - HEADACHE [None]
  - NEURALGIA [None]
  - RESPIRATORY DEPRESSION [None]
  - TRANSIENT ISCHAEMIC ATTACK [None]
